FAERS Safety Report 7789334-0 (Version None)
Quarter: 2011Q3

REPORT INFORMATION
  Report Type: 
  Country: None (occurrence: None)
  Receive Date: 20110930
  Receipt Date: 20110920
  Transmission Date: 20111222
  Serious: Yes (Death)
  Sender: FDA-Public Use
  Company Number: US-GLAXOSMITHKLINE-A0946466A

PATIENT
  Age: 76 Year
  Sex: Male

DRUGS (3)
  1. TYKERB [Suspect]
     Indication: BREAST CANCER
     Dosage: 750MG PER DAY
     Route: 048
     Dates: start: 20110322, end: 20110811
  2. XELODA [Concomitant]
  3. ZOFRAN [Concomitant]

REACTIONS (1)
  - DEATH [None]
